FAERS Safety Report 15678360 (Version 2)
Quarter: 2019Q1

REPORT INFORMATION
  Report Type: Spontaneous
  Country: US (occurrence: US)
  Receive Date: 20181201
  Receipt Date: 20190114
  Transmission Date: 20190417
  Serious: Yes (Other)
  Sender: FDA-Public Use
  Company Number: US-TEVA-2018-US-980456

PATIENT
  Sex: Male

DRUGS (2)
  1. SYNRIBO [Suspect]
     Active Substance: OMACETAXINE MEPESUCCINATE
     Indication: CHRONIC MYELOID LEUKAEMIA
     Dosage: DOSAGE-2.875MG/0.82ML
     Route: 065
     Dates: start: 20181116
  2. SYNRIBO [Suspect]
     Active Substance: OMACETAXINE MEPESUCCINATE
     Dosage: DOSAGE-2.875MG/0.82ML
     Route: 065
     Dates: start: 20181229, end: 20190102

REACTIONS (6)
  - Abdominal pain [Unknown]
  - Blood count abnormal [Unknown]
  - Injection site erythema [Unknown]
  - Fatigue [Unknown]
  - Renal mass [Unknown]
  - Asthenia [Unknown]
